FAERS Safety Report 22075939 (Version 2)
Quarter: 2023Q1

REPORT INFORMATION
  Report Type: Spontaneous
  Country: JP (occurrence: JP)
  Receive Date: 20230308
  Receipt Date: 20230315
  Transmission Date: 20230417
  Serious: Yes (Hospitalization, Other)
  Sender: FDA-Public Use
  Company Number: JP-002147023-NVSJ2023JP004206

PATIENT
  Age: 70 Year
  Sex: Female

DRUGS (2)
  1. LETROZOLE [Suspect]
     Active Substance: LETROZOLE
     Indication: Breast cancer
     Dosage: 2.5 MG
     Route: 048
     Dates: start: 202205, end: 20230227
  2. XARELTO [Suspect]
     Active Substance: RIVAROXABAN
     Indication: Ovarian vein thrombosis
     Dosage: UNK
     Route: 048

REACTIONS (2)
  - Cerebral haemorrhage [Recovered/Resolved]
  - Cerebral infarction [Recovered/Resolved]

NARRATIVE: CASE EVENT DATE: 20230227
